FAERS Safety Report 21331537 (Version 2)
Quarter: 2022Q4

REPORT INFORMATION
  Report Type: Report from Study
  Country: US (occurrence: US)
  Receive Date: 20220914
  Receipt Date: 20221212
  Transmission Date: 20230112
  Serious: Yes (Hospitalization)
  Sender: FDA-Public Use
  Company Number: US-ARGENX-2022-ARGX-US001757

PATIENT

DRUGS (1)
  1. VYVGART [Suspect]
     Active Substance: EFGARTIGIMOD ALFA-FCAB
     Indication: Myasthenia gravis
     Dosage: 820 MG
     Route: 042
     Dates: start: 20220627, end: 20220718

REACTIONS (3)
  - Myasthenia gravis crisis [Unknown]
  - Fall [Unknown]
  - Asthenia [Unknown]
